FAERS Safety Report 8351992 (Version 4)
Quarter: 2012Q4

REPORT INFORMATION
  Report Type: 
  Country: US (occurrence: US)
  Receive Date: 20120124
  Receipt Date: 20121015
  Transmission Date: 20130627
  Serious: Yes (Death, Other)
  Sender: FDA-Public Use
  Company Number: US-ELI_LILLY_AND_COMPANY-US201201006609

PATIENT
  Age: 45 Year
  Sex: Female

DRUGS (13)
  1. BYETTA [Suspect]
     Dosage: 5 mg, bid
     Route: 058
  2. MS CONTIN [Concomitant]
     Dosage: 30 mg, tid
  3. ALLEGRA [Concomitant]
     Dosage: 130 mg, UNK
  4. SINGULAIR [Concomitant]
     Dosage: 10 mg, qd
  5. AMARYL [Concomitant]
     Dosage: 2 mg, qd
  6. BENICAR [Concomitant]
     Dosage: 1 DF, qd
  7. PERCOCET [Concomitant]
     Dosage: UNK, prn
  8. NEXIUM [Concomitant]
     Dosage: 40 mg, qd
  9. FLOVENT [Concomitant]
     Dosage: UNK, qd
  10. ALBUTEROL [Concomitant]
  11. COLACE [Concomitant]
     Dosage: 100 mg, UNK
     Route: 048
  12. SENOKOT [Concomitant]
     Dosage: 1 DF, each evening
     Route: 048
  13. DULCOLAX [Concomitant]
     Dosage: 10 mg, prn
     Route: 054

REACTIONS (6)
  - Death [Fatal]
  - Pancreatic carcinoma [Unknown]
  - Metastases to liver [Not Recovered/Not Resolved]
  - Metastases to lung [Not Recovered/Not Resolved]
  - Metastatic neoplasm [Unknown]
  - Weight decreased [Unknown]
